APPROVED DRUG PRODUCT: ZOFRAN
Active Ingredient: ONDANSETRON HYDROCHLORIDE
Strength: EQ 2MG BASE/ML **Federal Register determination that product was not discontinued or withdrawn for safety or effectiveness reasons**
Dosage Form/Route: INJECTABLE;INJECTION
Application: N020007 | Product #001
Applicant: SANDOZ INC
Approved: Jan 4, 1991 | RLD: Yes | RS: No | Type: DISCN